FAERS Safety Report 7222154-4 (Version None)
Quarter: 2011Q1

REPORT INFORMATION
  Report Type: 
  Country: None (occurrence: None)
  Receive Date: 20110112
  Receipt Date: 20110104
  Transmission Date: 20110831
  Serious: Yes (Other)
  Sender: FDA-Public Use
  Company Number: PHHY2011DE01208

PATIENT
  Sex: Female

DRUGS (1)
  1. GLEEVEC [Suspect]
     Indication: CHRONIC MYELOID LEUKAEMIA
     Dosage: 600 MG, DAILY
     Route: 048
     Dates: start: 20070101

REACTIONS (8)
  - INTERVERTEBRAL DISC PROTRUSION [None]
  - NAUSEA [None]
  - MUSCLE SPASMS [None]
  - TRISMUS [None]
  - MYALGIA [None]
  - ARTHRALGIA [None]
  - PALPITATIONS [None]
  - BACK PAIN [None]
